FAERS Safety Report 25646827 (Version 1)
Quarter: 2025Q3

REPORT INFORMATION
  Report Type: Spontaneous
  Country: AU (occurrence: AU)
  Receive Date: 20250805
  Receipt Date: 20250805
  Transmission Date: 20251020
  Serious: Yes (Other)
  Sender: JOHNSON AND JOHNSON
  Company Number: AU-JNJFOC-20250801921

PATIENT
  Age: 56 Year
  Sex: Male

DRUGS (5)
  1. SPRAVATO [Suspect]
     Active Substance: ESKETAMINE
     Indication: Product used for unknown indication
     Route: 045
  2. NORTRIPTYLINE [Suspect]
     Active Substance: NORTRIPTYLINE
  3. DEXTROAMPHETAMINE [Concomitant]
     Active Substance: DEXTROAMPHETAMINE
     Indication: Product used for unknown indication
     Dosage: PRN
  4. MIRTAZAPINE [Concomitant]
     Active Substance: MIRTAZAPINE
     Indication: Product used for unknown indication
  5. PRAZOSIN [Concomitant]
     Active Substance: PRAZOSIN
     Indication: Product used for unknown indication

REACTIONS (5)
  - Dystonia [Recovering/Resolving]
  - Dysdiadochokinesis [Recovering/Resolving]
  - Coordination abnormal [Recovering/Resolving]
  - Dysarthria [Recovering/Resolving]
  - Reduced facial expression [Recovering/Resolving]
